FAERS Safety Report 11702100 (Version 1)
Quarter: 2015Q4

REPORT INFORMATION
  Report Type: Spontaneous
  Country: US (occurrence: US)
  Receive Date: 20151105
  Receipt Date: 20151105
  Transmission Date: 20160304
  Serious: No
  Sender: FDA-Public Use
  Company Number: PHEH2015US022637

PATIENT
  Sex: Female

DRUGS (1)
  1. GLEEVEC [Suspect]
     Active Substance: IMATINIB MESYLATE
     Indication: SMALL INTESTINE CARCINOMA
     Dosage: 400 MG, QD
     Route: 048
     Dates: start: 20140414

REACTIONS (4)
  - Malaise [Unknown]
  - Vomiting [Unknown]
  - Dysphagia [Unknown]
  - Off label use [Unknown]
